FAERS Safety Report 21462275 (Version 3)
Quarter: 2022Q4

REPORT INFORMATION
  Report Type: Report from Study
  Country: US (occurrence: US)
  Receive Date: 20221016
  Receipt Date: 20221208
  Transmission Date: 20230113
  Serious: Yes (Hospitalization)
  Sender: FDA-Public Use
  Company Number: US-JNJFOC-20221010930

PATIENT
  Age: 64 Year
  Sex: Female
  Weight: 90.800 kg

DRUGS (1)
  1. TREMFYA [Suspect]
     Active Substance: GUSELKUMAB
     Indication: Product used for unknown indication
     Route: 065
     Dates: start: 20211231

REACTIONS (3)
  - Pneumonia respiratory syncytial viral [Unknown]
  - Product dose omission issue [Unknown]
  - Drug delivery system malfunction [Unknown]
